FAERS Safety Report 9762715 (Version 2)
Quarter: 2013Q4

REPORT INFORMATION
  Report Type: Spontaneous
  Country: GB (occurrence: None)
  Receive Date: 20131213
  Receipt Date: 20131218
  Transmission Date: 20140711
  Serious: Yes (Disabling)
  Sender: FDA-Public Use
  Company Number: AUR-APL-2013-10298

PATIENT
  Age: 90 Year
  Sex: Male

DRUGS (7)
  1. RAMIPRIL [Suspect]
     Indication: HYPERTENSION
     Route: 048
     Dates: start: 20130228, end: 20131118
  2. AMLODIPINE (AMLODIPINE) [Concomitant]
  3. FINASTERIDE (FINASTERIDE) [Concomitant]
  4. FUROSEMIDE (FUROSEMIDE) [Concomitant]
  5. METOPROLOL (METOPROLOL) [Concomitant]
  6. MOVICOL (POLYETHYL. GLYC. W/POTAS. CHLOR./SOD. BICARB.) [Concomitant]
  7. TRAZODONE (TRAZODONE) [Concomitant]

REACTIONS (2)
  - Arthropathy [None]
  - C-reactive protein increased [None]
